FAERS Safety Report 12452523 (Version 1)
Quarter: 2016Q2

REPORT INFORMATION
  Report Type: Spontaneous
  Country: ES (occurrence: ES)
  Receive Date: 20160609
  Receipt Date: 20160609
  Transmission Date: 20160815
  Serious: Yes (Hospitalization)
  Sender: FDA-Public Use
  Company Number: ES-WATSON-2016-11342

PATIENT
  Age: 57 Year
  Sex: Male

DRUGS (7)
  1. LUMINAL                            /00023201/ [Concomitant]
     Active Substance: PHENOBARBITAL SODIUM
     Indication: EPILEPSY
     Dosage: 0.1 MG, TWICE DAILY
     Route: 048
     Dates: start: 2004
  2. TROMALYT [Suspect]
     Active Substance: ASPIRIN
     Indication: PRODUCT USED FOR UNKNOWN INDICATION
     Dosage: 150 MG, DAILY
     Route: 048
     Dates: start: 20150112, end: 20150130
  3. SINERGINA                          /00017401/ [Concomitant]
     Indication: EPILEPSY
     Dosage: 1 DOSE FORM THREE TIMES DAILY
     Route: 048
     Dates: start: 2004
  4. RIVOTRIL [Concomitant]
     Active Substance: CLONAZEPAM
     Indication: EPILEPSY
     Dosage: 0.5 MG, TWICE DAILY
     Route: 048
     Dates: start: 2004
  5. KEPPRA [Concomitant]
     Active Substance: LEVETIRACETAM
     Indication: EPILEPSY
     Dosage: 1000 MG, TWICE DAILY
     Route: 048
     Dates: start: 2004
  6. OMEPRAZOLE                         /00661202/ [Concomitant]
     Indication: PROPHYLAXIS AGAINST GASTROINTESTINAL ULCER
     Dosage: 20 MG, DAILY
     Route: 048
  7. HALOPERIDOL (WATSON LABORATORIES) [Suspect]
     Active Substance: HALOPERIDOL
     Indication: AGITATION
     Dosage: 1 DF, THREE TIMES DAILY
     Route: 048
     Dates: start: 20150112, end: 20150130

REACTIONS (2)
  - Pancreatitis [Recovered/Resolved]
  - Colonic pseudo-obstruction [Recovered/Resolved]

NARRATIVE: CASE EVENT DATE: 20150130
